FAERS Safety Report 15517585 (Version 2)
Quarter: 2019Q2

REPORT INFORMATION
  Report Type: Spontaneous
  Country: FR (occurrence: FR)
  Receive Date: 20181017
  Receipt Date: 20190522
  Transmission Date: 20190711
  Serious: Yes (Life-Threatening)
  Sender: FDA-Public Use
  Company Number: FR-MYLANLABS-2018M1078011

PATIENT
  Age: 82 Year
  Sex: Female
  Weight: 80 kg

DRUGS (6)
  1. IBUFETUM [Suspect]
     Active Substance: IBUPROFEN
     Indication: PAIN
     Dosage: 2 DOSAGE FORM, QD
     Route: 003
     Dates: end: 20180923
  2. AMIODARONE [Concomitant]
     Active Substance: AMIODARONE
     Indication: PRODUCT USED FOR UNKNOWN INDICATION
     Dosage: UNK
  3. PREVISCAN                          /00789001/ [Suspect]
     Active Substance: FLUINDIONE
     Indication: ATRIAL FIBRILLATION
     Dosage: 0.5 DF, QD
     Route: 048
     Dates: end: 20180923
  4. LEVOTHYROXINE SODIQUE [Concomitant]
     Active Substance: LEVOTHYROXINE SODIUM
     Indication: PRODUCT USED FOR UNKNOWN INDICATION
     Dosage: UNK
  5. FUROSEMIDE. [Suspect]
     Active Substance: FUROSEMIDE
     Indication: VENTRICULAR DYSFUNCTION
     Dosage: 40 MG, QD
     Route: 048
     Dates: end: 20180923
  6. BISOPROLOL [Suspect]
     Active Substance: BISOPROLOL
     Indication: VENTRICULAR DYSFUNCTION
     Dosage: 1.25 MG, QD
     Route: 048
     Dates: end: 20180923

REACTIONS (3)
  - Anaemia [Recovering/Resolving]
  - Breast haematoma [Recovered/Resolved with Sequelae]
  - Shock haemorrhagic [Recovering/Resolving]

NARRATIVE: CASE EVENT DATE: 20180923
